FAERS Safety Report 6875500-5 (Version None)
Quarter: 2010Q3

REPORT INFORMATION
  Report Type: 
  Country: None (occurrence: None)
  Receive Date: 20100727
  Receipt Date: 20100716
  Transmission Date: 20110219
  Serious: Yes (Hospitalization, Other)
  Sender: FDA-Public Use
  Company Number: US-JNJFOC-20100705973

PATIENT
  Sex: Male
  Weight: 89.36 kg

DRUGS (10)
  1. SANDOZ FENTANYL TRANSDERMAL SYSTEM [Suspect]
     Indication: PAIN
     Route: 062
  2. SANDOZ FENTANYL TRANSDERMAL SYSTEM [Suspect]
     Route: 062
  3. PRILOSEC [Concomitant]
     Indication: GASTRIC OPERATION
     Route: 048
  4. NOVOLOG [Concomitant]
     Indication: DIABETES MELLITUS
     Dosage: AS NECESSARY.
     Route: 058
  5. METFORMIN HCL [Concomitant]
     Indication: DIABETES MELLITUS
     Route: 048
  6. PLAVIX [Concomitant]
     Indication: ANTICOAGULANT THERAPY
     Route: 048
  7. FLOMAX [Concomitant]
     Indication: PROSTATOMEGALY
     Route: 048
  8. PROMETHAZINE HCL [Concomitant]
     Indication: PRODUCT USED FOR UNKNOWN INDICATION
     Route: 048
  9. TESTOSTERONE [Concomitant]
     Indication: BLOOD TESTOSTERONE DECREASED
     Route: 030
  10. PENICILLIN [Concomitant]
     Indication: RHEUMATIC FEVER
     Route: 030

REACTIONS (7)
  - DRUG DOSE OMISSION [None]
  - FEELING ABNORMAL [None]
  - INFLUENZA [None]
  - PNEUMONIA [None]
  - RHEUMATIC FEVER [None]
  - WITHDRAWAL SYNDROME [None]
  - WRONG TECHNIQUE IN DRUG USAGE PROCESS [None]
